FAERS Safety Report 8140583-1 (Version None)
Quarter: 2012Q1

REPORT INFORMATION
  Report Type: 
  Country: None (occurrence: None)
  Receive Date: 20120216
  Receipt Date: 20120207
  Transmission Date: 20120608
  Serious: Yes (Hospitalization, Other)
  Sender: FDA-Public Use
  Company Number: US-SANOFI-AVENTIS-2012SA001178

PATIENT
  Age: 67 Year
  Sex: Female

DRUGS (4)
  1. LANTUS [Suspect]
     Dosage: 2-3 UNITS DAILY
     Route: 058
     Dates: start: 20080101, end: 20110101
  2. SOLOSTAR [Suspect]
     Indication: TYPE 2 DIABETES MELLITUS
     Dates: start: 20080101
  3. VICTOZA [Concomitant]
  4. LANTUS [Suspect]
     Indication: TYPE 2 DIABETES MELLITUS
     Dosage: 8-10 UNITS DAILY
     Route: 058
     Dates: start: 20110101

REACTIONS (4)
  - ANAPHYLACTIC REACTION [None]
  - BLOOD PRESSURE INCREASED [None]
  - HEART RATE INCREASED [None]
  - INFECTION [None]
